FAERS Safety Report 8110811-7 (Version None)
Quarter: 2012Q1

REPORT INFORMATION
  Report Type: 
  Country: None (occurrence: None)
  Receive Date: 20120203
  Receipt Date: 20120126
  Transmission Date: 20120608
  Serious: Yes (Hospitalization)
  Sender: FDA-Public Use
  Company Number: US-BAYER-2012-009982

PATIENT
  Sex: Female

DRUGS (2)
  1. YASMIN [Suspect]
     Dosage: UNK
     Dates: start: 20040101
  2. YAZ [Suspect]
     Dosage: UNK
     Dates: start: 20070101, end: 20100206

REACTIONS (8)
  - ANXIETY [None]
  - PSYCHOLOGICAL TRAUMA [None]
  - PAIN [None]
  - ANHEDONIA [None]
  - DEEP VEIN THROMBOSIS [None]
  - FEAR [None]
  - PULMONARY EMBOLISM [None]
  - INJURY [None]
